FAERS Safety Report 7151727-2 (Version None)
Quarter: 2010Q4

REPORT INFORMATION
  Report Type: 
  Country: None (occurrence: None)
  Receive Date: 20101210
  Receipt Date: 20101129
  Transmission Date: 20110411
  Serious: Yes (Other)
  Sender: FDA-Public Use
  Company Number: AT-GENENTECH-310580

PATIENT
  Sex: Female
  Weight: 60 kg

DRUGS (1)
  1. RITUXIMAB [Suspect]
     Indication: RHEUMATOID ARTHRITIS
     Dosage: UNK
     Route: 065
     Dates: start: 20080625, end: 20080721

REACTIONS (1)
  - GLIOBLASTOMA [None]
